FAERS Safety Report 18074067 (Version 2)
Quarter: 2020Q3

REPORT INFORMATION
  Report Type: Spontaneous
  Country: US (occurrence: US)
  Receive Date: 20200727
  Receipt Date: 20200824
  Transmission Date: 20201103
  Serious: Yes (Other)
  Sender: FDA-Public Use
  Company Number: US-BEH-2020120355

PATIENT
  Age: 52 Year
  Sex: Male

DRUGS (1)
  1. PRIVIGEN [Suspect]
     Active Substance: HUMAN IMMUNOGLOBULIN G
     Indication: POLYNEUROPATHY
     Dosage: 80 GRAM, QMT (EVERY 4 WEEKS)
     Route: 042
     Dates: start: 20191105

REACTIONS (6)
  - Product use in unapproved indication [Unknown]
  - Renal impairment [Unknown]
  - Illness [Unknown]
  - Therapy interrupted [Unknown]
  - No adverse event [Unknown]
  - No adverse event [Unknown]

NARRATIVE: CASE EVENT DATE: 20200715
